FAERS Safety Report 21880823 (Version 17)
Quarter: 2025Q2

REPORT INFORMATION
  Report Type: Spontaneous
  Country: CO (occurrence: CO)
  Receive Date: 20230118
  Receipt Date: 20250630
  Transmission Date: 20250716
  Serious: Yes (Hospitalization, Other)
  Sender: BIOMARIN
  Company Number: CO-SA-SAC20230112000992

PATIENT
  Age: 10 Year
  Sex: Female
  Weight: 11.474 kg

DRUGS (10)
  1. LARONIDASE [Suspect]
     Active Substance: LARONIDASE
     Indication: Mucopolysaccharidosis I
     Dates: start: 20140827, end: 20230102
  2. LARONIDASE [Suspect]
     Active Substance: LARONIDASE
  3. LARONIDASE [Suspect]
     Active Substance: LARONIDASE
     Dosage: 14.15 MG, QW
     Dates: start: 20240510, end: 2024
  4. LARONIDASE [Suspect]
     Active Substance: LARONIDASE
     Dosage: 13.63 MG, QW
     Dates: start: 2024, end: 2024
  5. LARONIDASE [Suspect]
     Active Substance: LARONIDASE
  6. LARONIDASE [Suspect]
     Active Substance: LARONIDASE
     Dosage: 13.34 MG, QW
  7. LARONIDASE [Suspect]
     Active Substance: LARONIDASE
     Dosage: 14.5 MG, QW
  8. CETIRIZINE [Concomitant]
     Active Substance: CETIRIZINE HYDROCHLORIDE
     Indication: Premedication
  9. DEXAMETHASONE [Concomitant]
     Active Substance: DEXAMETHASONE
     Indication: Premedication
  10. VITAMINS [Concomitant]
     Active Substance: VITAMINS
     Indication: Malnutrition

REACTIONS (46)
  - Pulmonary congestion [Recovered/Resolved]
  - Epileptic encephalopathy [Not Recovered/Not Resolved]
  - Dyspnoea [Recovered/Resolved]
  - Seizure [Not Recovered/Not Resolved]
  - Pneumonia [Recovered/Resolved]
  - Tachycardia [Recovered/Resolved]
  - Constipation [Recovering/Resolving]
  - Oxygen saturation decreased [Recovering/Resolving]
  - Seizure [Recovered/Resolved]
  - Throat lesion [Recovering/Resolving]
  - Pharyngitis [Recovering/Resolving]
  - Influenza like illness [Recovered/Resolved]
  - Nasal congestion [Recovered/Resolved]
  - Cough [Recovered/Resolved]
  - Pyrexia [Recovered/Resolved]
  - Urinary tract infection [Recovered/Resolved]
  - Dysphagia [Recovering/Resolving]
  - Abdominal pain [Recovering/Resolving]
  - Abdominal distension [Recovered/Resolved]
  - Tremor [Recovered/Resolved]
  - Chills [Recovered/Resolved]
  - Abdominal distension [Recovered/Resolved]
  - Hyperhidrosis [Recovered/Resolved]
  - Hypersensitivity [Recovered/Resolved]
  - Oxygen saturation decreased [Recovering/Resolving]
  - Abdominal discomfort [Not Recovered/Not Resolved]
  - Salivary hypersecretion [Recovering/Resolving]
  - Pallor [Recovering/Resolving]
  - Heart rate increased [Recovered/Resolved]
  - Respiratory rate increased [Not Recovered/Not Resolved]
  - Pallor [Not Recovered/Not Resolved]
  - Acute sinusitis [Not Recovered/Not Resolved]
  - Dyskinesia [Not Recovered/Not Resolved]
  - Excessive eye blinking [Not Recovered/Not Resolved]
  - Insomnia [Not Recovered/Not Resolved]
  - Sleep apnoea syndrome [Recovering/Resolving]
  - Ocular hyperaemia [Recovering/Resolving]
  - Eye inflammation [Not Recovered/Not Resolved]
  - Pyrexia [Recovered/Resolved]
  - Weight decreased [Recovered/Resolved]
  - Nasal congestion [Not Recovered/Not Resolved]
  - Cough [Not Recovered/Not Resolved]
  - Asthenia [Recovering/Resolving]
  - Nausea [Recovering/Resolving]
  - Product preparation issue [Unknown]
  - Incorrect drug administration rate [Unknown]

NARRATIVE: CASE EVENT DATE: 20220101
